FAERS Safety Report 26157904 (Version 1)
Quarter: 2025Q4

REPORT INFORMATION
  Report Type: Spontaneous
  Country: US (occurrence: None)
  Receive Date: 20251213
  Receipt Date: 20251213
  Transmission Date: 20260118
  Serious: No
  Sender: FDA-CTU
  Company Number: None

PATIENT
  Age: 47 Year
  Sex: Male
  Weight: 83.25 kg

DRUGS (5)
  1. TRYPTYR [Suspect]
     Active Substance: ACOLTREMON
     Indication: Dry eye
     Dosage: OTHER QUANTITY : 60 VIALS;?FREQUENCY : TWICE A DAY;
     Route: 047
     Dates: start: 20251016, end: 20251025
  2. TADALAFIL [Concomitant]
     Active Substance: TADALAFIL
  3. cycloapoeinw [Concomitant]
  4. emulsion [Concomitant]
  5. fish oil gummies [Concomitant]

REACTIONS (5)
  - Visual impairment [None]
  - Eye movement disorder [None]
  - Vision blurred [None]
  - Balance disorder [None]
  - Headache [None]

NARRATIVE: CASE EVENT DATE: 20251021
